FAERS Safety Report 13066709 (Version 2)
Quarter: 2016Q4

REPORT INFORMATION
  Report Type: Spontaneous
  Country: VN (occurrence: VN)
  Receive Date: 20161227
  Receipt Date: 20161229
  Transmission Date: 20170207
  Serious: Yes (Death)
  Sender: FDA-Public Use
  Company Number: VN-PFIZER INC-2016599937

PATIENT
  Age: 36 Year
  Sex: Female

DRUGS (5)
  1. SOLU-MEDROL [Suspect]
     Active Substance: METHYLPREDNISOLONE SODIUM SUCCINATE
     Indication: ANAESTHETIC PREMEDICATION
     Dosage: 40 MG, SINGLE
     Route: 042
     Dates: start: 20161225, end: 20161225
  2. ATROPINE. [Suspect]
     Active Substance: ATROPINE
     Indication: ANAESTHETIC PREMEDICATION
     Dosage: 0.25 MG, UNK
     Dates: start: 20161225, end: 20161225
  3. MIDAZOLAM [Suspect]
     Active Substance: MIDAZOLAM\MIDAZOLAM HYDROCHLORIDE
     Indication: ANAESTHETIC PREMEDICATION
     Dosage: 5 MG, UNK
     Dates: start: 20161225, end: 20161225
  4. DIPRIVAN [Suspect]
     Active Substance: PROPOFOL
     Dosage: 100 MG, UNK
     Dates: start: 20161225, end: 20161225
  5. ESMERON [Suspect]
     Active Substance: ROCURONIUM BROMIDE
     Dosage: 30 MG, UNK
     Dates: start: 20161225, end: 20161225

REACTIONS (1)
  - Anaphylactic shock [Fatal]

NARRATIVE: CASE EVENT DATE: 20161225
